FAERS Safety Report 4622613-4 (Version None)
Quarter: 2005Q1

REPORT INFORMATION
  Report Type: 
  Country: None (occurrence: None)
  Receive Date: 20050330
  Receipt Date: 20050315
  Transmission Date: 20050727
  Serious: Yes (Other)
  Sender: FDA-Public Use
  Company Number: US-GLAXOSMITHKLINE-A0549813A

PATIENT
  Age: 78 Year
  Sex: Female
  Weight: 84 kg

DRUGS (4)
  1. CITRUCEL CAPLETS [Suspect]
     Indication: CONSTIPATION
     Route: 048
     Dates: start: 20040101, end: 20040601
  2. CATAPRES [Concomitant]
     Route: 048
  3. COREG [Concomitant]
     Route: 048
  4. HYZAAR [Concomitant]
     Route: 048

REACTIONS (2)
  - ABDOMINAL DISTENSION [None]
  - COLONIC POLYP [None]
